FAERS Safety Report 7655728-7 (Version None)
Quarter: 2011Q3

REPORT INFORMATION
  Report Type: 
  Country: None (occurrence: None)
  Receive Date: 20110804
  Receipt Date: 20110801
  Transmission Date: 20111222
  Serious: Yes (Hospitalization)
  Sender: FDA-Public Use
  Company Number: US-ABBOTT-11P-163-0843372-00

PATIENT
  Age: 49 Year
  Sex: Female

DRUGS (9)
  1. NIFEDIPINE [Concomitant]
     Indication: RENAL FAILURE
     Route: 048
  2. NIFEDIPINE [Concomitant]
     Indication: HYPERTENSION
  3. CLONIDINE [Concomitant]
     Indication: HYPERTENSION
  4. HYDRALAZINE HCL [Concomitant]
     Indication: HYPERTENSION
  5. CAPTOPRIL [Concomitant]
     Indication: RENAL FAILURE
     Route: 048
  6. CAPTOPRIL [Concomitant]
     Indication: HYPERTENSION
  7. CLONIDINE [Concomitant]
     Indication: RENAL FAILURE
     Route: 048
  8. HYDRALAZINE HCL [Concomitant]
     Indication: RENAL FAILURE
     Route: 048
  9. HUMIRA [Suspect]
     Indication: RHEUMATOID ARTHRITIS
     Dates: start: 20110601

REACTIONS (1)
  - RENAL FAILURE [None]
